FAERS Safety Report 4840850-0 (Version None)
Quarter: 2005Q4

REPORT INFORMATION
  Report Type: 
  Country: None (occurrence: None)
  Receive Date: 20051130
  Receipt Date: 20050830
  Transmission Date: 20060501
  Serious: No
  Sender: FDA-Public Use
  Company Number: US-BRISTOL-MYERS SQUIBB COMPANY-13095344

PATIENT
  Age: 56 Year
  Sex: Female
  Weight: 75 kg

DRUGS (11)
  1. AVALIDE [Suspect]
     Indication: HYPERTENSION
     Route: 048
     Dates: start: 20040101
  2. SYNTHROID [Concomitant]
  3. PRAVACHOL [Concomitant]
  4. PREVACID [Concomitant]
  5. AVANDAMET [Concomitant]
  6. CELEBREX [Concomitant]
  7. METFORMIN HCL [Concomitant]
  8. AVANDIA [Concomitant]
  9. ESTRATEST [Concomitant]
  10. ANTHRAQUINONE LAXATIVE [Concomitant]
  11. EXTRA STRENGTH TYLENOL [Concomitant]
     Dates: start: 20050829

REACTIONS (2)
  - ANAEMIA [None]
  - LICHEN PLANUS [None]
